FAERS Safety Report 7876646-5 (Version None)
Quarter: 2011Q4

REPORT INFORMATION
  Report Type: 
  Country: None (occurrence: None)
  Receive Date: 20111031
  Receipt Date: 20110328
  Transmission Date: 20120403
  Serious: Yes (Hospitalization, Other)
  Sender: FDA-Public Use
  Company Number: US-BAYER-2011-012441

PATIENT
  Age: 70 Year
  Sex: Female
  Weight: 68.027 kg

DRUGS (6)
  1. ULTRAVIST 150 [Suspect]
     Indication: COMPUTERISED TOMOGRAM ABDOMEN
     Dosage: 80 ML, ONCE
     Route: 042
     Dates: start: 20110125, end: 20110125
  2. PRILOSEC [Concomitant]
  3. ANTIHYPERTENSIVES [Concomitant]
  4. ULTRAVIST 150 [Suspect]
     Indication: URINARY TRACT INFECTION
  5. ULTRAVIST 150 [Suspect]
     Indication: ENDOMETRIAL CANCER
  6. VITAMIN B-12 [Concomitant]

REACTIONS (5)
  - FEELING HOT [None]
  - MOANING [None]
  - UNRESPONSIVE TO STIMULI [None]
  - PRESYNCOPE [None]
  - HYPERSENSITIVITY [None]
